FAERS Safety Report 5342937-5 (Version None)
Quarter: 2007Q2

REPORT INFORMATION
  Report Type: 
  Country: None (occurrence: None)
  Receive Date: 20070416
  Receipt Date: 20070215
  Transmission Date: 20071010
  Serious: No
  Sender: FDA-Public Use
  Company Number: 2007SP000526

PATIENT
  Age: 72 Year
  Sex: Female
  Weight: 61.6892 kg

DRUGS (5)
  1. LUNESTA [Suspect]
     Indication: SLEEP DISORDER
     Dosage: 2 MG; PRN; ORAL
     Route: 048
     Dates: start: 20060101, end: 20060101
  2. SYNTHROID [Concomitant]
  3. OXYCONTIN [Concomitant]
  4. COZAAR [Concomitant]
  5. MULTIVITAMIN [Concomitant]

REACTIONS (1)
  - FEELING ABNORMAL [None]
